FAERS Safety Report 9290904 (Version 1)
Quarter: 2013Q2

REPORT INFORMATION
  Report Type: Spontaneous
  Country: ES (occurrence: ES)
  Receive Date: 20130515
  Receipt Date: 20130515
  Transmission Date: 20140414
  Serious: Yes (Life-Threatening, Hospitalization, Other)
  Sender: FDA-Public Use
  Company Number: ES-ABBOTT-13P-144-1088074-00

PATIENT
  Age: 9 Year
  Sex: Male

DRUGS (3)
  1. HUMIRA [Suspect]
     Indication: CROHN^S DISEASE
     Route: 058
     Dates: start: 201302, end: 201304
  2. TRAKOLIMUS [Concomitant]
     Indication: CROHN^S DISEASE
  3. CORTICOIDS [Concomitant]
     Indication: CROHN^S DISEASE

REACTIONS (7)
  - Anaemia [Not Recovered/Not Resolved]
  - Thrombocytopenia [Not Recovered/Not Resolved]
  - Leukopenia [Not Recovered/Not Resolved]
  - Renal failure [Not Recovered/Not Resolved]
  - Bone marrow disorder [Unknown]
  - Haematochezia [Unknown]
  - Mycobacterium avium complex infection [Not Recovered/Not Resolved]
